FAERS Safety Report 12387668 (Version 4)
Quarter: 2019Q2

REPORT INFORMATION
  Report Type: Report from Study
  Country: US (occurrence: US)
  Receive Date: 20160520
  Receipt Date: 20190610
  Transmission Date: 20190711
  Serious: Yes (Hospitalization, Other)
  Sender: FDA-Public Use
  Company Number: US-ROCHE-1756592

PATIENT

DRUGS (1)
  1. VEMURAFENIB. [Suspect]
     Active Substance: VEMURAFENIB
     Indication: METASTATIC MALIGNANT MELANOMA
     Route: 065

REACTIONS (14)
  - Chest discomfort [Recovered/Resolved]
  - Delirium [Recovered/Resolved]
  - Muscular weakness [Unknown]
  - Adrenal insufficiency [Recovered/Resolved with Sequelae]
  - Abdominal pain [Recovered/Resolved]
  - Electrocardiogram QT prolonged [Recovered/Resolved]
  - Guillain-Barre syndrome [Recovered/Resolved]
  - Sinus tachycardia [Recovered/Resolved]
  - Hypertension [Recovered/Resolved]
  - Hypokalaemia [Recovered/Resolved]
  - Back pain [Recovered/Resolved]
  - Tumour pain [Recovered/Resolved]
  - Palpitations [Recovered/Resolved]
  - Hypermagnesaemia [Recovered/Resolved]

NARRATIVE: CASE EVENT DATE: 20150317
